FAERS Safety Report 6686385-4 (Version None)
Quarter: 2010Q2

REPORT INFORMATION
  Report Type: 
  Country: None (occurrence: None)
  Receive Date: 20100419
  Receipt Date: 20100415
  Transmission Date: 20101027
  Serious: Yes (Death, Other)
  Sender: FDA-Public Use
  Company Number: SG-ROXANE LABORATORIES, INC.-2010-RO-00427RO

PATIENT
  Age: 50 Year
  Sex: Male

DRUGS (5)
  1. MORPHINE [Suspect]
     Indication: DYSPNOEA
     Route: 042
  2. MORPHINE [Suspect]
     Indication: SEDATION
     Route: 042
  3. DEXAMETHASONE [Suspect]
     Indication: TRACHEAL OEDEMA
     Dosage: 12 MG
     Route: 051
  4. DEXAMETHASONE [Suspect]
     Indication: SEDATION
     Dosage: 24 MG
     Route: 051
  5. MIDAZOLAM HCL [Suspect]
     Indication: SEDATION
     Route: 042

REACTIONS (4)
  - LUNG ABSCESS [None]
  - RESPIRATORY DISTRESS [None]
  - SEPSIS [None]
  - TRACHEO-OESOPHAGEAL FISTULA [None]
